FAERS Safety Report 10066823 (Version 1)
Quarter: 2014Q2

REPORT INFORMATION
  Report Type: Spontaneous
  Country: VN (occurrence: VN)
  Receive Date: 20140408
  Receipt Date: 20140408
  Transmission Date: 20141212
  Serious: Yes (Death)
  Sender: FDA-Public Use
  Company Number: VN-009507513-1404VNM003298

PATIENT
  Sex: 0

DRUGS (3)
  1. ESMERON [Suspect]
     Dosage: UNK, ONCE
     Dates: start: 20130720, end: 20130720
  2. HEPATITIS B VIRUS VACCINE (UNSPECIFIED) [Suspect]
     Indication: PROPHYLAXIS
     Dosage: UNK
  3. HEPATITIS B VIRUS VACCINE (UNSPECIFIED) [Suspect]
     Dosage: UNK

REACTIONS (3)
  - Death [Fatal]
  - Product name confusion [Fatal]
  - Wrong drug administered [Fatal]
